FAERS Safety Report 8224273-2 (Version None)
Quarter: 2012Q1

REPORT INFORMATION
  Report Type: 
  Country: None (occurrence: None)
  Receive Date: 20120319
  Receipt Date: 20120308
  Transmission Date: 20120608
  Serious: Yes (Other)
  Sender: FDA-Public Use
  Company Number: GGEL20120300252

PATIENT
  Age: 34 Year
  Sex: Female

DRUGS (4)
  1. NORGESTIMATE AND ETHINYL ESTRADIOL [Suspect]
     Indication: ORAL CONTRACEPTION
     Dosage: 1 IN 1 D, ORAL
     Route: 048
     Dates: start: 20090101, end: 20120126
  2. PROZAC (FLUOXETINE)(TABLETS)(FLUOXETINE) [Concomitant]
  3. SUBUTEX (BUPRENORPHINE)(TABLETS)(BUPRENORPHINE) [Concomitant]
  4. STOOL SOFTENER (TABLETS) [Concomitant]

REACTIONS (3)
  - DRUG INEFFECTIVE [None]
  - PREGNANCY ON ORAL CONTRACEPTIVE [None]
  - MATERNAL EXPOSURE DURING PREGNANCY [None]
